FAERS Safety Report 8960409 (Version 1)
Quarter: 2012Q4

REPORT INFORMATION
  Report Type: 
  Country: US (occurrence: US)
  Receive Date: 20121211
  Receipt Date: 20121211
  Transmission Date: 20130627
  Serious: No
  Sender: FDA-Public Use
  Company Number: US-PFIZER INC-2012306162

PATIENT
  Age: 83 Year
  Sex: Male

DRUGS (1)
  1. ZYVOX [Suspect]
     Indication: INFECTION MRSA
     Dosage: 600 mg, 2x/day
     Route: 048
     Dates: start: 20121127, end: 20121204

REACTIONS (1)
  - Volume blood decreased [Unknown]
